FAERS Safety Report 6746003-3 (Version None)
Quarter: 2010Q2

REPORT INFORMATION
  Report Type: 
  Country: None (occurrence: None)
  Receive Date: 20100528
  Receipt Date: 20100521
  Transmission Date: 20101027
  Serious: Yes (Other)
  Sender: FDA-Public Use
  Company Number: NZ-PFIZER INC-2010064472

PATIENT
  Sex: Male

DRUGS (2)
  1. LIPITOR [Suspect]
     Dosage: 20 MG, UNK
     Dates: start: 20090301, end: 20090901
  2. LIPITOR [Suspect]
     Dosage: 40 MG, UNK
     Dates: start: 20090901, end: 20100501

REACTIONS (3)
  - AMNESIA [None]
  - COGNITIVE DISORDER [None]
  - HEADACHE [None]
